FAERS Safety Report 9170975 (Version 1)
Quarter: 2013Q1

REPORT INFORMATION
  Report Type: Report from Study
  Country: US (occurrence: US)
  Receive Date: 20130319
  Receipt Date: 20130319
  Transmission Date: 20140127
  Serious: Yes (Death, Other)
  Sender: FDA-Public Use
  Company Number: US-ASTELLAS-2013US002866

PATIENT
  Age: 76 Year
  Sex: Female
  Weight: 36.28 kg

DRUGS (1)
  1. ERLOTINIB TABLET [Suspect]
     Indication: LUNG NEOPLASM MALIGNANT
     Dosage: UNK
     Route: 048
     Dates: start: 20130108, end: 20130113

REACTIONS (2)
  - Coma [Recovered/Resolved]
  - Lung neoplasm malignant [Fatal]
